FAERS Safety Report 21806743 (Version 1)
Quarter: 2023Q1

REPORT INFORMATION
  Report Type: Report from Study
  Country: EG (occurrence: EG)
  Receive Date: 20230102
  Receipt Date: 20230102
  Transmission Date: 20230418
  Serious: Yes (Death, Hospitalization)
  Sender: FDA-Public Use
  Company Number: EG-002147023-NVSC2022EG301484

PATIENT
  Sex: Female
  Weight: 5.9 kg

DRUGS (1)
  1. ZOLGENSMA [Suspect]
     Active Substance: ONASEMNOGENE ABEPARVOVEC-XIOI
     Indication: Spinal muscular atrophy
     Dosage: 33 (UNIT NOT PROVIDED), ONCE/SINGLE
     Route: 042
     Dates: start: 20220803

REACTIONS (1)
  - Pneumonia viral [Fatal]
